FAERS Safety Report 6657951-7 (Version None)
Quarter: 2010Q1

REPORT INFORMATION
  Report Type: 
  Country: None (occurrence: None)
  Receive Date: 20100330
  Receipt Date: 20100316
  Transmission Date: 20100710
  Serious: Yes (Death, Other)
  Sender: FDA-Public Use
  Company Number: US-ROCHE-693591

PATIENT
  Sex: Female

DRUGS (1)
  1. AVASTIN [Suspect]
     Indication: OVARIAN CANCER
     Route: 065

REACTIONS (4)
  - DEATH [None]
  - SMALL INTESTINAL OBSTRUCTION [None]
  - UNEVALUABLE EVENT [None]
  - WOUND DEHISCENCE [None]
